FAERS Safety Report 5828042-X (Version None)
Quarter: 2008Q3

REPORT INFORMATION
  Report Type: 
  Country: None (occurrence: None)
  Receive Date: 20080730
  Receipt Date: 20071004
  Transmission Date: 20090109
  Serious: No
  Sender: FDA-Public Use
  Company Number: A0686149A

PATIENT
  Age: 56 Year
  Sex: Male

DRUGS (2)
  1. RANITIDINE HCL [Suspect]
     Dosage: 150MG TWICE PER DAY
     Route: 048
  2. VERAPAMIL [Concomitant]

REACTIONS (1)
  - DRUG INEFFECTIVE [None]
